FAERS Safety Report 24648036 (Version 2)
Quarter: 2024Q4

REPORT INFORMATION
  Report Type: Report from Study
  Country: US (occurrence: US)
  Receive Date: 20241121
  Receipt Date: 20241204
  Transmission Date: 20250115
  Serious: Yes (Death, Other)
  Sender: UCB
  Company Number: US-UCBSA-2024059623

PATIENT
  Age: 93 Year
  Sex: Male

DRUGS (1)
  1. BRIVARACETAM [Suspect]
     Active Substance: BRIVARACETAM
     Indication: Seizure
     Dosage: 50 MILLIGRAM, 2X/DAY (BID)
     Dates: end: 2024

REACTIONS (1)
  - Sialoadenitis [Fatal]

NARRATIVE: CASE EVENT DATE: 20240814
